FAERS Safety Report 4826465-9 (Version None)
Quarter: 2005Q4

REPORT INFORMATION
  Report Type: 
  Country: None (occurrence: None)
  Receive Date: 20051014
  Receipt Date: 20050822
  Transmission Date: 20060501
  Serious: Yes (Disabling, Other)
  Sender: FDA-Public Use
  Company Number: 2005091371

PATIENT
  Age: 79 Year
  Sex: Female

DRUGS (1)
  1. MACUGEN [Suspect]
     Indication: MACULAR DEGENERATION
     Dosage: INTRAVENOUS
     Route: 042
     Dates: start: 20050322

REACTIONS (3)
  - CATARACT [None]
  - CONDITION AGGRAVATED [None]
  - ENDOPHTHALMITIS [None]
